FAERS Safety Report 8211047-1 (Version None)
Quarter: 2012Q1

REPORT INFORMATION
  Report Type: 
  Country: None (occurrence: None)
  Receive Date: 20120315
  Receipt Date: 20120307
  Transmission Date: 20120608
  Serious: Yes (Hospitalization)
  Sender: FDA-Public Use
  Company Number: PHHY2012CZ014963

PATIENT
  Sex: Female

DRUGS (6)
  1. CALTRATE PLUS [Concomitant]
     Dosage: 1 DF, QD
  2. COLECALCIFEROL [Concomitant]
     Dosage: 3 DRP, DAILY
  3. TEGRETOL [Suspect]
     Indication: EPILEPSY
     Dosage: 1/2 TABLET IN THE MORNING, 1 TABLET IN THE EVENING
     Route: 048
     Dates: start: 20120104, end: 20120201
  4. ZYLLT [Concomitant]
     Indication: HEADACHE
     Dosage: 1 DF, QD
     Dates: start: 20110401
  5. BONIVA [Concomitant]
     Dosage: 1 DF, QMO
  6. NSAID'S [Concomitant]

REACTIONS (10)
  - TOXIC SKIN ERUPTION [None]
  - PYREXIA [None]
  - DRY MOUTH [None]
  - RASH [None]
  - PRURITUS [None]
  - DERMATITIS ALLERGIC [None]
  - CHILLS [None]
  - C-REACTIVE PROTEIN INCREASED [None]
  - RASH MACULO-PAPULAR [None]
  - COUGH [None]
